FAERS Safety Report 10983370 (Version 1)
Quarter: 2015Q2

REPORT INFORMATION
  Report Type: Spontaneous
  Country: US (occurrence: US)
  Receive Date: 20150403
  Receipt Date: 20150403
  Transmission Date: 20150821
  Serious: Yes (Other)
  Sender: FDA-Public Use
  Company Number: US-SA-2015SA040781

PATIENT
  Age: 69 Year
  Sex: Male

DRUGS (3)
  1. TAZOBACTAM/PIPERACILLIN [Concomitant]
  2. VANCOMYCIN [Concomitant]
     Active Substance: VANCOMYCIN
  3. THYMOGLOBULIN [Suspect]
     Active Substance: LAPINE T-LYMPHOCYTE IMMUNE GLOBULIN
     Indication: IMMUNE TOLERANCE INDUCTION
     Route: 042

REACTIONS (5)
  - Cytokine release syndrome [Unknown]
  - Hyperpyrexia [Unknown]
  - Vasoplegia syndrome [Unknown]
  - Tachycardia [Recovering/Resolving]
  - Hypotension [Recovering/Resolving]
